FAERS Safety Report 5806920-5 (Version None)
Quarter: 2008Q3

REPORT INFORMATION
  Report Type: 
  Country: None (occurrence: None)
  Receive Date: 20080711
  Receipt Date: 20080701
  Transmission Date: 20090109
  Serious: Yes (Hospitalization, Other)
  Sender: FDA-Public Use
  Company Number: JP-JNJFOC-20080700749

PATIENT
  Sex: Male

DRUGS (6)
  1. CRAVIT [Suspect]
     Indication: UPPER RESPIRATORY TRACT INFLAMMATION
     Route: 048
  2. LOXONIN [Interacting]
     Indication: NASOPHARYNGITIS
     Route: 048
  3. LOXONIN [Interacting]
     Indication: ANTIPYRESIS
     Route: 048
  4. MUCOSTA [Suspect]
     Indication: GASTRITIS PROPHYLAXIS
     Route: 048
  5. COLGEN KOWA [Suspect]
     Indication: NASOPHARYNGITIS
     Route: 065
  6. BIOFERMIN [Concomitant]
     Indication: GASTROINTESTINAL DISORDER
     Route: 048

REACTIONS (3)
  - DRUG INTERACTION [None]
  - EATING DISORDER [None]
  - STEVENS-JOHNSON SYNDROME [None]
